FAERS Safety Report 23383758 (Version 1)
Quarter: 2024Q1

REPORT INFORMATION
  Report Type: Spontaneous
  Country: US (occurrence: None)
  Receive Date: 20240109
  Receipt Date: 20240109
  Transmission Date: 20240409
  Serious: No
  Sender: FDA-Public Use
  Company Number: None

PATIENT
  Sex: Female

DRUGS (1)
  1. RINVOQ [Suspect]
     Active Substance: UPADACITINIB
     Indication: Rheumatoid arthritis
     Dosage: 15MG DAILY ORAL?
     Route: 048
     Dates: start: 202306

REACTIONS (4)
  - Drug ineffective [None]
  - Arthralgia [None]
  - Arthralgia [None]
  - Pain in extremity [None]
